FAERS Safety Report 12324662 (Version 3)
Quarter: 2017Q3

REPORT INFORMATION
  Report Type: Spontaneous
  Country: ES (occurrence: ES)
  Receive Date: 20160502
  Receipt Date: 20170927
  Transmission Date: 20171127
  Serious: Yes (Death, Hospitalization, Other)
  Sender: FDA-Public Use
  Company Number: ES-TAKEDA-2016TUS007562

PATIENT
  Age: 72 Year
  Sex: Female

DRUGS (4)
  1. MAPROTILINE [Suspect]
     Active Substance: MAPROTILINE
     Dosage: 37.5 MG, UNK
     Route: 065
  2. MAPROTILINE [Suspect]
     Active Substance: MAPROTILINE
     Indication: PRODUCT USED FOR UNKNOWN INDICATION
     Dosage: 75 MG, UNK
     Route: 065
  3. BRINTELLIX [Suspect]
     Active Substance: VORTIOXETINE HYDROBROMIDE
     Indication: MAJOR DEPRESSION
     Dosage: 5 MG, UNK
     Route: 065
     Dates: start: 20160310
  4. BRINTELLIX [Suspect]
     Active Substance: VORTIOXETINE HYDROBROMIDE
     Dosage: 10 MG, Q4WEEKS
     Route: 065

REACTIONS (11)
  - Polydipsia psychogenic [Fatal]
  - Dyspnoea [Fatal]
  - Bradycardia [Fatal]
  - Aspiration [Fatal]
  - Coma [Fatal]
  - Hypotension [Fatal]
  - Cardio-respiratory arrest [Fatal]
  - Hyponatraemia [Fatal]
  - Thrombotic stroke [Fatal]
  - Depressed level of consciousness [Fatal]
  - Seizure [Fatal]
